FAERS Safety Report 25211380 (Version 2)
Quarter: 2025Q2

REPORT INFORMATION
  Report Type: Spontaneous
  Country: AT (occurrence: AT)
  Receive Date: 20250417
  Receipt Date: 20250624
  Transmission Date: 20250716
  Serious: Yes (Death, Hospitalization, Other)
  Sender: JOHNSON AND JOHNSON
  Company Number: AT-JNJFOC-20250404415

PATIENT
  Sex: Male

DRUGS (1)
  1. CARVYKTI [Suspect]
     Active Substance: CILTACABTAGENE AUTOLEUCEL
     Indication: Plasma cell myeloma
     Route: 065
     Dates: start: 20250206

REACTIONS (3)
  - Cerebral haemorrhage [Fatal]
  - Influenza [Unknown]
  - Cytokine release syndrome [Unknown]

NARRATIVE: CASE EVENT DATE: 20250321
